FAERS Safety Report 10869552 (Version 1)
Quarter: 2015Q1

REPORT INFORMATION
  Report Type: Spontaneous
  Country: PT (occurrence: PT)
  Receive Date: 20150226
  Receipt Date: 20150226
  Transmission Date: 20150721
  Serious: Yes (Hospitalization)
  Sender: FDA-Public Use
  Company Number: PT-JNJFOC-20150209557

PATIENT
  Age: 72 Year
  Sex: Male

DRUGS (9)
  1. PARACETAMOL [Suspect]
     Active Substance: ACETAMINOPHEN
     Indication: INFLUENZA LIKE ILLNESS
     Route: 048
     Dates: start: 20061211, end: 20061218
  2. PARACETAMOL [Suspect]
     Active Substance: ACETAMINOPHEN
     Route: 048
  3. ATORVASTATIN CALCIUM. [Concomitant]
     Active Substance: ATORVASTATIN CALCIUM
     Indication: HYPERCHOLESTEROLAEMIA
     Dosage: MEDICATION WAS ADMINISTERED BY THE PATIENT FOR SEVERAL YEARS.
     Route: 048
  4. ALLOPURINOL. [Concomitant]
     Active Substance: ALLOPURINOL
     Indication: HYPERURICAEMIA
     Dosage: MEDICATION WAS ADMINISTERED BY THE PATIENT FOR SEVERAL YEARS.
     Route: 048
  5. FUROSEMIDE. [Concomitant]
     Active Substance: FUROSEMIDE
     Indication: HYPERTENSION
     Dosage: MEDICATION WAS ADMINISTERED BY THE PATIENT FOR SEVERAL YEARS.
     Route: 048
  6. ACTIFED [Suspect]
     Active Substance: PSEUDOEPHEDRINE HYDROCHLORIDE\TRIPROLIDINE HYDROCHLORIDE
     Indication: INFLUENZA LIKE ILLNESS
     Dosage: PSEUDOEPHEDRINE 60MG   TRIPROLIDINE 2.5 MG
     Route: 048
     Dates: start: 20061211, end: 20061218
  7. CAPTOPRIL. [Concomitant]
     Active Substance: CAPTOPRIL
     Indication: HYPERTENSION
     Dosage: MEDICATION WAS ADMINISTERED BY THE PATIENT FOR SEVERAL YEARS.
     Route: 048
  8. OMEPRAZOLE. [Concomitant]
     Active Substance: OMEPRAZOLE
     Indication: PROPHYLAXIS
     Dosage: MEDICATION WAS ADMINISTERED BY THE PATIENT FOR SEVERAL YEARS.
     Route: 048
  9. CLOPIDOGREL SULPHATE [Concomitant]
     Indication: THROMBOSIS PROPHYLAXIS
     Dosage: MEDICATION WAS ADMINISTERED BY THE PATIENT FOR SEVERAL YEARS.
     Route: 048

REACTIONS (4)
  - Rash pruritic [Recovered/Resolved]
  - Dermatosis [Recovered/Resolved]
  - Rash maculo-papular [Recovered/Resolved]
  - Toxic skin eruption [Recovered/Resolved]

NARRATIVE: CASE EVENT DATE: 20061215
